FAERS Safety Report 15654233 (Version 2)
Quarter: 2018Q4

REPORT INFORMATION
  Report Type: Spontaneous
  Country: CN (occurrence: CN)
  Receive Date: 20181125
  Receipt Date: 20181129
  Transmission Date: 20190205
  Serious: No
  Sender: FDA-Public Use
  Company Number: CN-ROCHE-2219774

PATIENT

DRUGS (1)
  1. LUCENTIS [Suspect]
     Active Substance: RANIBIZUMAB
     Indication: NEOVASCULAR AGE-RELATED MACULAR DEGENERATION
     Route: 065

REACTIONS (2)
  - Visual impairment [Recovering/Resolving]
  - Drug ineffective [Unknown]
